FAERS Safety Report 9510014 (Version 1)
Quarter: 2013Q3

REPORT INFORMATION
  Report Type: Spontaneous
  Country: US (occurrence: US)
  Receive Date: 20130909
  Receipt Date: 20130909
  Transmission Date: 20140515
  Serious: No
  Sender: FDA-Public Use
  Company Number: US-BRISTOL-MYERS SQUIBB COMPANY-18862185

PATIENT
  Age: 62 Year
  Sex: Male

DRUGS (4)
  1. ABILIFY [Suspect]
     Dosage: ABT AN YEAR
     Dates: end: 201211
  2. PAXIL [Suspect]
  3. FISH OIL [Concomitant]
  4. ASPIRIN [Concomitant]

REACTIONS (3)
  - Dyskinesia [Not Recovered/Not Resolved]
  - Burning sensation [Not Recovered/Not Resolved]
  - Pruritus [Not Recovered/Not Resolved]
